FAERS Safety Report 18265388 (Version 1)
Quarter: 2020Q3

REPORT INFORMATION
  Report Type: Other
  Country: US (occurrence: US)
  Receive Date: 20200914
  Receipt Date: 20200914
  Transmission Date: 20201103
  Serious: No
  Sender: FDA-Public Use
  Company Number: US-LEADIANT BIOSCIENCES INC-2020STPI000121

PATIENT
  Sex: Female

DRUGS (1)
  1. MATULANE [Suspect]
     Active Substance: PROCARBAZINE HYDROCHLORIDE
     Indication: BRAIN NEOPLASM MALIGNANT
     Dosage: 50 MG, TWICE DAILY ON DAYS 8?21 Q 42 DAY CYCLE
     Route: 048
     Dates: start: 20200111

REACTIONS (2)
  - Nausea [Unknown]
  - Abdominal discomfort [Unknown]
